FAERS Safety Report 17256124 (Version 1)
Quarter: 2019Q4

REPORT INFORMATION
  Report Type: Spontaneous
  Country: US (occurrence: US)
  Receive Date: 20191216
  Receipt Date: 20191216
  Transmission Date: 20200122
  Serious: Yes (Life-Threatening, Hospitalization)
  Sender: FDA-Public Use
  Company Number: None

PATIENT
  Age: 75 Year
  Sex: Male
  Weight: 117.93 kg

DRUGS (4)
  1. ROSUVASTATIN (ROSUVASTATIN CA 20MG TAB ) [Suspect]
     Active Substance: ROSUVASTATIN
     Indication: VASCULAR OPERATION
     Route: 048
     Dates: start: 20180813, end: 20190910
  2. ROSUVASTATIN (ROSUVASTATIN CA 20MG TAB ) [Suspect]
     Active Substance: ROSUVASTATIN
     Indication: CARDIAC OPERATION
     Route: 048
     Dates: start: 20180813, end: 20190910
  3. ROSUVASTATIN (ROSUVASTATIN CA 20MG TAB) [Suspect]
     Active Substance: ROSUVASTATIN
     Indication: CORONARY ARTERY DISEASE
  4. ROSUVASTATIN (ROSUVASTATIN CA 20MG TAB) [Suspect]
     Active Substance: ROSUVASTATIN
     Indication: HYPERLIPIDAEMIA

REACTIONS (11)
  - Fall [None]
  - Scrotal oedema [None]
  - Blister [None]
  - Fluid overload [None]
  - Rhabdomyolysis [None]
  - Hepatic enzyme increased [None]
  - Generalised oedema [None]
  - Hypertensive emergency [None]
  - Acute kidney injury [None]
  - Metabolic encephalopathy [None]
  - Acute myocardial infarction [None]

NARRATIVE: CASE EVENT DATE: 20190910
